FAERS Safety Report 7058518-1 (Version None)
Quarter: 2010Q4

REPORT INFORMATION
  Report Type: 
  Country: None (occurrence: None)
  Receive Date: 20101022
  Receipt Date: 20101018
  Transmission Date: 20110411
  Serious: Yes (Hospitalization, Congenital Anomaly)
  Sender: FDA-Public Use
  Company Number: A0679773A

PATIENT
  Sex: Female
  Weight: 3.8 kg

DRUGS (1)
  1. PAXIL [Suspect]
     Indication: DEPRESSION
     Dates: start: 19960101, end: 20010101

REACTIONS (17)
  - AORTIC STENOSIS [None]
  - AORTIC VALVE INCOMPETENCE [None]
  - CAESAREAN SECTION [None]
  - CARDIAC MURMUR [None]
  - CONGENITAL AORTIC STENOSIS [None]
  - DIZZINESS [None]
  - DRUG EXPOSURE DURING PREGNANCY [None]
  - ELECTROCARDIOGRAM REPOLARISATION ABNORMALITY [None]
  - HYPERTENSION [None]
  - LEFT VENTRICULAR HYPERTROPHY [None]
  - MATERNAL DRUGS AFFECTING FOETUS [None]
  - NON-CARDIAC CHEST PAIN [None]
  - PULMONARY ARTERY STENOSIS CONGENITAL [None]
  - PULMONARY VALVE STENOSIS [None]
  - PYREXIA [None]
  - SINUS TACHYCARDIA [None]
  - VIRAL PHARYNGITIS [None]
